FAERS Safety Report 6018529-1 (Version None)
Quarter: 2008Q4

REPORT INFORMATION
  Report Type: 
  Country: None (occurrence: None)
  Receive Date: 20081223
  Receipt Date: 20081211
  Transmission Date: 20090506
  Serious: Yes (Other)
  Sender: FDA-Public Use
  Company Number: US-PFIZER INC-2008077320

PATIENT
  Sex: Female
  Weight: 86.621 kg

DRUGS (7)
  1. DILANTIN [Suspect]
     Indication: CONVULSION
     Dosage: 100 MG, 3X/DAY
     Dates: start: 19810101
  2. DILANTIN [Suspect]
     Indication: ANEURYSM
  3. PHENOBARBITAL [Concomitant]
     Dosage: UNK
  4. RANITIDINE [Concomitant]
     Dosage: UNK
  5. SIMVASTATIN [Concomitant]
     Dosage: UNK
  6. DRUG, UNSPECIFIED [Concomitant]
     Dosage: UNK
  7. ACETAMINOPHEN [Concomitant]
     Dosage: UNK

REACTIONS (20)
  - ANOREXIA [None]
  - BLOOD TEST ABNORMAL [None]
  - CEREBROVASCULAR ACCIDENT [None]
  - CONVULSION [None]
  - DIABETES MELLITUS [None]
  - DRUG HYPERSENSITIVITY [None]
  - EXTRASYSTOLES [None]
  - FALL [None]
  - GINGIVAL BLEEDING [None]
  - HAEMATEMESIS [None]
  - HEART RATE INCREASED [None]
  - LIMB INJURY [None]
  - LOSS OF CONSCIOUSNESS [None]
  - OEDEMA PERIPHERAL [None]
  - PAIN [None]
  - PARALYSIS [None]
  - PRURITUS [None]
  - SHOCK [None]
  - SWELLING [None]
  - WEIGHT INCREASED [None]
